FAERS Safety Report 7362473-4 (Version None)
Quarter: 2011Q1

REPORT INFORMATION
  Report Type: 
  Country: None (occurrence: None)
  Receive Date: 20110318
  Receipt Date: 20110315
  Transmission Date: 20110831
  Serious: Yes (Hospitalization)
  Sender: FDA-Public Use
  Company Number: US-RB-023869-11

PATIENT
  Age: 55 Year
  Sex: Male

DRUGS (1)
  1. SUBOXONE [Suspect]
     Indication: PRODUCT USED FOR UNKNOWN INDICATION
     Dosage: DOSING INFORMATION UNKNOWN
     Route: 065

REACTIONS (5)
  - DRUG DEPENDENCE [None]
  - ABNORMAL DREAMS [None]
  - ASTHENIA [None]
  - INSOMNIA [None]
  - GALLBLADDER DISORDER [None]
